FAERS Safety Report 16280079 (Version 1)
Quarter: 2019Q2

REPORT INFORMATION
  Report Type: Spontaneous
  Country: US (occurrence: US)
  Receive Date: 20190507
  Receipt Date: 20190507
  Transmission Date: 20190711
  Serious: No
  Sender: FDA-Public Use
  Company Number: US-GLENMARK PHARMACEUTICALS-2019GMK039624

PATIENT

DRUGS (11)
  1. FISH OIL [Concomitant]
     Active Substance: FISH OIL
     Indication: NAIL DISORDER
  2. INSULIN [Concomitant]
     Active Substance: INSULIN NOS
     Indication: DIABETES MELLITUS
     Dosage: UNK
     Route: 065
  3. FISH OIL [Concomitant]
     Active Substance: FISH OIL
     Indication: HAIR DISORDER
     Dosage: UNK
     Route: 065
  4. ASPIRIN                            /00002701/ [Concomitant]
     Active Substance: ASPIRIN
     Indication: BLOOD DISORDER
     Dosage: UNK
     Route: 065
  5. VITAMIN E                          /00110501/ [Concomitant]
     Active Substance: TOCOPHEROL
     Indication: HAIR DISORDER
     Dosage: UNK
     Route: 065
  6. CLOBESTASOL PROPIONATE TOPICAL SOLUTION USP 0.0 [Suspect]
     Active Substance: CLOBETASOL PROPIONATE
     Indication: HAIR DISORDER
     Dosage: UNK, BID (10 YEARS (UNSPECIFIED)]
     Route: 061
  7. VITAMIN E                          /00110501/ [Concomitant]
     Active Substance: TOCOPHEROL
     Indication: NAIL DISORDER
  8. MEXICAM [Concomitant]
     Indication: ANXIETY
     Dosage: UNK
     Route: 065
  9. CLOBESTASOL PROPIONATE TOPICAL SOLUTION USP 0.0 [Suspect]
     Active Substance: CLOBETASOL PROPIONATE
     Indication: DANDRUFF
  10. ROSUVASTATIN. [Concomitant]
     Active Substance: ROSUVASTATIN
     Indication: PRODUCT USED FOR UNKNOWN INDICATION
     Dosage: UNK
     Route: 065
  11. LOSARTAN. [Concomitant]
     Active Substance: LOSARTAN
     Indication: HYPERTENSION
     Dosage: UNK
     Route: 065

REACTIONS (1)
  - Drug effective for unapproved indication [Unknown]
